FAERS Safety Report 8719436 (Version 2)
Quarter: 2012Q4

REPORT INFORMATION
  Report Type: 
  Country: US (occurrence: US)
  Receive Date: 20120813
  Receipt Date: 20120902
  Transmission Date: 20130627
  Serious: No
  Sender: FDA-Public Use
  Company Number: US-009507513-1207USA012409

PATIENT

DRUGS (1)
  1. PEGINTRON [Suspect]
     Indication: HEPATITIS C
     Route: 058

REACTIONS (5)
  - Injection site erythema [Unknown]
  - Accidental exposure to product [Unknown]
  - Device malfunction [Unknown]
  - Drug dose omission [Unknown]
  - Device difficult to use [Unknown]
